FAERS Safety Report 4504202-5 (Version None)
Quarter: 2004Q4

REPORT INFORMATION
  Report Type: 
  Country: None (occurrence: None)
  Receive Date: 20041116
  Receipt Date: 20041116
  Transmission Date: 20050328
  Serious: Yes (Disabling, Other)
  Sender: FDA-Public Use
  Company Number: None

PATIENT
  Age: 35 Year
  Sex: Male
  Weight: 90.7194 kg

DRUGS (5)
  1. DEPAKOTE [Suspect]
     Indication: ANXIETY
     Dosage: 1 TABLET TID
     Dates: start: 20041001
  2. DEPAKOTE [Suspect]
     Indication: ATTENTION DEFICIT/HYPERACTIVITY DISORDER
     Dosage: 1 TABLET TID
     Dates: start: 20041001
  3. DEPAKOTE [Suspect]
     Indication: SPONDYLOSIS
     Dosage: 1 TABLET TID
     Dates: start: 20041001
  4. LIDODERM LIDOCAINE PATCH [Concomitant]
  5. KLONOPIN [Concomitant]

REACTIONS (6)
  - ANXIETY [None]
  - ARTHRALGIA [None]
  - CONDITION AGGRAVATED [None]
  - CONFUSIONAL STATE [None]
  - GAIT DISTURBANCE [None]
  - PSYCHOMOTOR HYPERACTIVITY [None]
